FAERS Safety Report 4490570-X (Version None)
Quarter: 2004Q4

REPORT INFORMATION
  Report Type: 
  Country: None (occurrence: None)
  Receive Date: 20041102
  Receipt Date: 20040510
  Transmission Date: 20050328
  Serious: Yes (Disabling, Other)
  Sender: FDA-Public Use
  Company Number: US-MERCK-0405USA00634

PATIENT
  Age: 76 Year
  Sex: Female
  Weight: 84 kg

DRUGS (2)
  1. VIOXX [Suspect]
     Indication: PAIN
     Route: 048
     Dates: start: 19990101, end: 20010101
  2. VIOXX [Suspect]
     Indication: RHEUMATOID ARTHRITIS
     Route: 048
     Dates: start: 19990101, end: 20010101

REACTIONS (19)
  - ANXIETY [None]
  - BLOOD DISORDER [None]
  - CARDIAC FAILURE CONGESTIVE [None]
  - CEREBROVASCULAR ACCIDENT [None]
  - CHEST PAIN [None]
  - CHRONIC FATIGUE SYNDROME [None]
  - COAGULOPATHY [None]
  - DYSPNOEA [None]
  - EMOTIONAL DISTRESS [None]
  - GASTRIC DISORDER [None]
  - GLAUCOMA [None]
  - HAEMATOCHEZIA [None]
  - HAEMORRHAGIC DIATHESIS [None]
  - HYPERTENSION [None]
  - JOINT SWELLING [None]
  - MYOCARDIAL INFARCTION [None]
  - OBESITY [None]
  - OEDEMA PERIPHERAL [None]
  - OSTEOARTHRITIS [None]
